FAERS Safety Report 5024479-X (Version None)
Quarter: 2006Q2

REPORT INFORMATION
  Report Type: 
  Country: None (occurrence: None)
  Receive Date: 20060613
  Receipt Date: 20060302
  Transmission Date: 20061013
  Serious: Yes (Death, Life-Threatening, Hospitalization)
  Sender: FDA-Public Use
  Company Number: PHHO2006JP03680

PATIENT
  Age: 75 Year
  Sex: Male

DRUGS (5)
  1. DIOVAN [Suspect]
     Indication: HYPERTENSION
     Dosage: 80 MG, QD
     Route: 048
     Dates: start: 20030710, end: 20050422
  2. DIGOSIN [Concomitant]
     Indication: ATRIAL FIBRILLATION
     Dates: end: 20050422
  3. ASPIRIN [Concomitant]
     Indication: ATRIAL FIBRILLATION
     Dates: end: 20050422
  4. DIART [Concomitant]
     Indication: CARDIAC FAILURE
     Dates: end: 20050422
  5. ARTIST [Concomitant]
     Indication: CARDIAC FAILURE
     Dates: end: 20050422

REACTIONS (4)
  - BLOOD PRESSURE DECREASED [None]
  - DEATH [None]
  - GASTRIC CANCER [None]
  - HAEMORRHAGE [None]
